FAERS Safety Report 7885167-5 (Version None)
Quarter: 2011Q4

REPORT INFORMATION
  Report Type: 
  Country: None (occurrence: None)
  Receive Date: 20111102
  Receipt Date: 20111025
  Transmission Date: 20120403
  Serious: Yes (Hospitalization, Other)
  Sender: FDA-Public Use
  Company Number: BR-ELI_LILLY_AND_COMPANY-BR201110006806

PATIENT
  Age: 46 Year
  Sex: Female

DRUGS (4)
  1. CRESTOR [Concomitant]
     Dosage: UNK, UNKNOWN
     Route: 065
  2. GLIMEPIRIDE [Concomitant]
     Dosage: UNK, UNKNOWN
     Route: 065
  3. METFORMIN HCL [Concomitant]
     Dosage: UNK, UNKNOWN
     Route: 065
  4. BYETTA [Suspect]
     Dosage: 5 UG, UNKNOWN
     Route: 065
     Dates: start: 20110601

REACTIONS (1)
  - HEPATITIS [None]
